FAERS Safety Report 8210869-0 (Version None)
Quarter: 2012Q1

REPORT INFORMATION
  Report Type: 
  Country: None (occurrence: None)
  Receive Date: 20120315
  Receipt Date: 20120307
  Transmission Date: 20120608
  Serious: Yes (Other)
  Sender: FDA-Public Use
  Company Number: US-BAYER-2011-077068

PATIENT
  Age: 19 Year
  Sex: Female
  Weight: 79.365 kg

DRUGS (3)
  1. MISOPROSTOL [Concomitant]
     Indication: PREGNANCY
  2. MIRENA [Suspect]
     Indication: CONTRACEPTION
     Dosage: 20 MCG/24HR, CONT
     Route: 015
     Dates: start: 20110613, end: 20110820
  3. DOXYCYCLINE [Concomitant]
     Dosage: 100 MG, UNK
     Route: 048
     Dates: start: 20110820

REACTIONS (8)
  - OROPHARYNGEAL PAIN [None]
  - PRODUCTIVE COUGH [None]
  - VOMITING [None]
  - GENITAL HAEMORRHAGE [None]
  - FEELING ABNORMAL [None]
  - PAIN [None]
  - ASTHENIA [None]
  - PREGNANCY WITH CONTRACEPTIVE DEVICE [None]
